FAERS Safety Report 24113726 (Version 1)
Quarter: 2024Q3

REPORT INFORMATION
  Report Type: Spontaneous
  Country: US (occurrence: US)
  Receive Date: 20240720
  Receipt Date: 20240720
  Transmission Date: 20241017
  Serious: Yes (Other)
  Sender: AMGEN
  Company Number: US-AMGEN-USASP2024141066

PATIENT
  Age: 85 Day
  Sex: Male

DRUGS (1)
  1. PROCRIT [Suspect]
     Active Substance: ERYTHROPOIETIN
     Indication: Anaemia
     Dosage: 200 U/KG/ QD (AT ABOUT 12 WK OF AGE)
     Route: 058

REACTIONS (1)
  - Neutropenia [Recovering/Resolving]
